FAERS Safety Report 21848518 (Version 2)
Quarter: 2023Q2

REPORT INFORMATION
  Report Type: Spontaneous
  Country: US (occurrence: US)
  Receive Date: 20230111
  Receipt Date: 20230405
  Transmission Date: 20230721
  Serious: No
  Sender: FDA-Public Use
  Company Number: US-CHEMOCENTRYX, INC.-2022USCCXI0561

PATIENT

DRUGS (3)
  1. TAVNEOS [Suspect]
     Active Substance: AVACOPAN
     Indication: Granulomatosis with polyangiitis
     Dosage: 3 CAPSULES (30 MG), 2X/DAY WITH FOOD
     Route: 048
     Dates: start: 20221018
  2. TAVNEOS [Suspect]
     Active Substance: AVACOPAN
     Indication: Renal disorder
     Dosage: 3 CAPSULES (30 MG), 2X/DAY WITH FOOD
     Route: 048
  3. TAVNEOS [Suspect]
     Active Substance: AVACOPAN
     Indication: Arthritis

REACTIONS (4)
  - Memory impairment [Not Recovered/Not Resolved]
  - Fungal infection [Not Recovered/Not Resolved]
  - Product dose omission in error [Not Recovered/Not Resolved]
  - Rash [Not Recovered/Not Resolved]

NARRATIVE: CASE EVENT DATE: 20220101
